FAERS Safety Report 13045426 (Version 1)
Quarter: 2016Q4

REPORT INFORMATION
  Report Type: Spontaneous
  Country: US (occurrence: US)
  Receive Date: 20161220
  Receipt Date: 20161220
  Transmission Date: 20170207
  Serious: No
  Sender: FDA-Public Use
  Company Number: US-009507513-1612USA002179

PATIENT
  Age: 32 Year
  Sex: Female

DRUGS (1)
  1. GANIRELIX ACETATE INJECTION [Suspect]
     Active Substance: GANIRELIX ACETATE
     Indication: INFERTILITY
     Dosage: 250 MICROGRAM, ONCE DAILY
     Route: 058
     Dates: start: 20161204

REACTIONS (1)
  - Incorrect product storage [Unknown]

NARRATIVE: CASE EVENT DATE: 20161204
